FAERS Safety Report 9607276 (Version 2)
Quarter: 2014Q1

REPORT INFORMATION
  Report Type: Other
  Country: HK (occurrence: HK)
  Receive Date: 20131009
  Receipt Date: 20140108
  Transmission Date: 20141002
  Serious: No
  Sender: FDA-Public Use
  Company Number: HK-BRISTOL-MYERS SQUIBB COMPANY-19494434

PATIENT
  Age: 61 Year
  Sex: Male

DRUGS (4)
  1. CETUXIMAB [Suspect]
     Indication: RECTOSIGMOID CANCER METASTATIC
  2. 5-FLUOROURACIL [Suspect]
     Indication: RECTOSIGMOID CANCER METASTATIC
  3. FOLINIC ACID [Suspect]
     Indication: RECTOSIGMOID CANCER METASTATIC
  4. OXALIPLATIN [Suspect]
     Indication: RECTOSIGMOID CANCER METASTATIC

REACTIONS (5)
  - Neuropathy peripheral [Unknown]
  - Stomatitis [Unknown]
  - Rash [Unknown]
  - Nausea [Unknown]
  - Paronychia [Unknown]
